FAERS Safety Report 16664189 (Version 1)
Quarter: 2019Q3

REPORT INFORMATION
  Report Type: Spontaneous
  Country: DK (occurrence: DK)
  Receive Date: 20190802
  Receipt Date: 20190802
  Transmission Date: 20191004
  Serious: Yes (Life-Threatening, Hospitalization)
  Sender: FDA-Public Use
  Company Number: DK-MYLANLABS-2019M1072548

PATIENT
  Age: 32 Year
  Sex: Male

DRUGS (5)
  1. QUETIAPIN ACCORD [Suspect]
     Active Substance: QUETIAPINE
     Indication: BIPOLAR DISORDER
     Dosage: 500 MILLIGRAM, QD, DOSIS NEDTRAPPET FRA 500MG TIL 400MG MENS CLOZAPIN OPTRAPPES
     Route: 048
     Dates: start: 2014
  2. LEPONEX [Suspect]
     Active Substance: CLOZAPINE
     Dosage: 100 MILLIGRAM, QD
     Route: 048
     Dates: start: 20190705, end: 20190715
  3. QUETIAPIN ACCORD [Suspect]
     Active Substance: QUETIAPINE
     Dosage: 400 MILLIGRAM, QD
     Route: 048
  4. LEPONEX [Suspect]
     Active Substance: CLOZAPINE
     Indication: SCHIZOPHRENIA
     Dosage: 25 MILLIGRAM, QD
     Route: 048
  5. LITAREX                            /00033708/ [Suspect]
     Active Substance: LITHIUM CITRATE
     Indication: AFFECTIVE DISORDER
     Dosage: 24 MILLIMOLE, QD
     Route: 048
     Dates: start: 201603

REACTIONS (4)
  - Dizziness [Unknown]
  - Myocarditis [Recovering/Resolving]
  - Atrioventricular block second degree [Not Recovered/Not Resolved]
  - Syncope [Unknown]

NARRATIVE: CASE EVENT DATE: 20190715
